FAERS Safety Report 16376780 (Version 1)
Quarter: 2019Q2

REPORT INFORMATION
  Report Type: Spontaneous
  Country: US (occurrence: US)
  Receive Date: 20190425
  Receipt Date: 20190425
  Transmission Date: 20190711
  Serious: No
  Sender: FDA-Public Use
  Company Number: None

PATIENT
  Age: 71 Year
  Sex: Male

DRUGS (7)
  1. MULTIVITAMINS [Concomitant]
     Active Substance: VITAMINS
  2. PROLIA [Concomitant]
     Active Substance: DENOSUMAB
  3. LOSARTAN. [Concomitant]
     Active Substance: LOSARTAN
  4. LUPRON [Concomitant]
     Active Substance: LEUPROLIDE ACETATE
  5. ERLEADA [Suspect]
     Active Substance: APALUTAMIDE
     Indication: PROSTATE CANCER
     Route: 048
     Dates: start: 20181120
  6. CALTRATE [Concomitant]
     Active Substance: CALCIUM CARBONATE
  7. ASPIRIN. [Concomitant]
     Active Substance: ASPIRIN

REACTIONS (1)
  - Hot flush [None]
